FAERS Safety Report 10142634 (Version 2)
Quarter: 2014Q2

REPORT INFORMATION
  Report Type: Spontaneous
  Country: MY (occurrence: None)
  Receive Date: 20140425
  Receipt Date: 20140501
  Transmission Date: 20141212
  Serious: Yes (Other)
  Sender: FDA-Public Use
  Company Number: FK201401440

PATIENT
  Sex: 0

DRUGS (2)
  1. PACLITAXEL [Suspect]
     Indication: MALIGNANT PERITONEAL NEOPLASM
     Dosage: 100MG, CYCLICAL?
  2. CARBOPLATIN (CARBOPLATIN) [Concomitant]

REACTIONS (6)
  - Loss of consciousness [None]
  - Flushing [None]
  - Rash [None]
  - Heart rate increased [None]
  - Blood pressure decreased [None]
  - Oxygen saturation decreased [None]
